FAERS Safety Report 19736358 (Version 1)
Quarter: 2021Q3

REPORT INFORMATION
  Report Type: Report from Study
  Country: FR (occurrence: FR)
  Receive Date: 20210823
  Receipt Date: 20210823
  Transmission Date: 20211014
  Serious: Yes (Hospitalization, Other)
  Sender: FDA-Public Use
  Company Number: FR-SHIRE-FR202026196

PATIENT
  Age: 36 Year
  Sex: Female

DRUGS (10)
  1. TEDUGLUTIDE [Suspect]
     Active Substance: TEDUGLUTIDE
     Indication: SHORT-BOWEL SYNDROME
     Dosage: 0.050 MILLIGRAM/KILOGRAM (2.6000), 7 DOSES PER WEEK
     Route: 065
     Dates: start: 20160316, end: 20160516
  2. TEDUGLUTIDE [Suspect]
     Active Substance: TEDUGLUTIDE
     Indication: SHORT-BOWEL SYNDROME
     Dosage: 0.050 MILLIGRAM/KILOGRAM (2.6000), 7 DOSES PER WEEK
     Route: 065
     Dates: start: 20160316, end: 20160516
  3. ACUPAN [Concomitant]
     Active Substance: NEFOPAM HYDROCHLORIDE
     Indication: PANCREATITIS ACUTE
  4. TEDUGLUTIDE [Suspect]
     Active Substance: TEDUGLUTIDE
     Indication: SHORT-BOWEL SYNDROME
     Dosage: 0.050 MILLIGRAM/KILOGRAM (2.6000), 7 DOSES PER WEEK
     Route: 065
     Dates: start: 20160316, end: 20160516
  5. TEDUGLUTIDE [Suspect]
     Active Substance: TEDUGLUTIDE
     Dosage: 0.050 MILLIGRAM/KILOGRAM (2.2000), 7 DOSES PER WEEK
     Route: 065
     Dates: start: 20181105, end: 20190822
  6. TEDUGLUTIDE [Suspect]
     Active Substance: TEDUGLUTIDE
     Indication: SHORT-BOWEL SYNDROME
     Dosage: 0.050 MILLIGRAM/KILOGRAM (2.6000), 7 DOSES PER WEEK
     Route: 065
     Dates: start: 20160316, end: 20160516
  7. TEDUGLUTIDE [Suspect]
     Active Substance: TEDUGLUTIDE
     Dosage: 0.050 MILLIGRAM/KILOGRAM (2.2000), 7 DOSES PER WEEK
     Route: 065
     Dates: start: 20181105, end: 20190822
  8. TEDUGLUTIDE [Suspect]
     Active Substance: TEDUGLUTIDE
     Dosage: 0.050 MILLIGRAM/KILOGRAM (2.2000), 7 DOSES PER WEEK
     Route: 065
     Dates: start: 20181105, end: 20190822
  9. TEDUGLUTIDE [Suspect]
     Active Substance: TEDUGLUTIDE
     Dosage: 0.050 MILLIGRAM/KILOGRAM (2.2000), 7 DOSES PER WEEK
     Route: 065
     Dates: start: 20181105, end: 20190822
  10. MORPHINE [Concomitant]
     Active Substance: MORPHINE
     Indication: PANCREATITIS ACUTE

REACTIONS (2)
  - Venous thrombosis [Recovered/Resolved]
  - Pancreatitis acute [Recovered/Resolved]

NARRATIVE: CASE EVENT DATE: 20200512
